FAERS Safety Report 6390529-1 (Version None)
Quarter: 2009Q4

REPORT INFORMATION
  Report Type: 
  Country: None (occurrence: None)
  Receive Date: 20091003
  Receipt Date: 20090918
  Transmission Date: 20100525
  Serious: Yes (Hospitalization, Other)
  Sender: FDA-Public Use
  Company Number: 1000007973

PATIENT
  Age: 83 Year
  Sex: Female
  Weight: 74.8 kg

DRUGS (6)
  1. ESCITALOPRAM [Suspect]
     Indication: ANXIETY
     Dosage: 10 MG (10 MG,1 IN 1 D),ORAL
     Route: 048
     Dates: end: 20080606
  2. ZESTRIL [Concomitant]
  3. ASPIRIN [Concomitant]
  4. ACIDUM FOLICUM (TABLETS) [Concomitant]
  5. PERENTEROL (CAPSULES) [Concomitant]
  6. DIPIPERON (TABLETS) [Concomitant]

REACTIONS (13)
  - AKATHISIA [None]
  - ANXIETY [None]
  - AORTIC VALVE INCOMPETENCE [None]
  - BLOOD SODIUM DECREASED [None]
  - BRADYCARDIA [None]
  - BUNDLE BRANCH BLOCK RIGHT [None]
  - DRUG LEVEL INCREASED [None]
  - EFFUSION [None]
  - EJECTION FRACTION DECREASED [None]
  - MYOCARDIAL INFARCTION [None]
  - PLATELET COUNT INCREASED [None]
  - PNEUMONIA [None]
  - VENTRICULAR EXTRASYSTOLES [None]
